FAERS Safety Report 6830120-3 (Version None)
Quarter: 2010Q3

REPORT INFORMATION
  Report Type: 
  Country: None (occurrence: None)
  Receive Date: 20100711
  Receipt Date: 20100524
  Transmission Date: 20110219
  Serious: No
  Sender: FDA-Public Use
  Company Number: US-ALLERGAN-1006773US

PATIENT
  Age: 42 Year
  Sex: Female

DRUGS (6)
  1. LATISSE [Suspect]
     Indication: TRICHIASIS
     Dosage: 1 GTT, QHS
     Route: 061
  2. PAXIL [Concomitant]
  3. MULTI-VITAMIN [Concomitant]
  4. IRON [Concomitant]
  5. CALCIUM CARBONATE [Concomitant]
  6. LOVAZA [Concomitant]

REACTIONS (1)
  - MELANOCYTIC NAEVUS [None]
